FAERS Safety Report 7138578-X (Version None)
Quarter: 2010Q4

REPORT INFORMATION
  Report Type: 
  Country: None (occurrence: None)
  Receive Date: 20101118
  Receipt Date: 20101109
  Transmission Date: 20110411
  Serious: Yes (Other)
  Sender: FDA-Public Use
  Company Number: 2010EU005891

PATIENT
  Age: 4 Year
  Sex: Female
  Weight: 17 kg

DRUGS (1)
  1. PROTOPIC [Suspect]
     Dosage: 0.03 %, PRN, TOPICAL
     Route: 061

REACTIONS (4)
  - DIARRHOEA [None]
  - INFLUENZA LIKE ILLNESS [None]
  - OROPHARYNGEAL PAIN [None]
  - PYREXIA [None]
